FAERS Safety Report 9821872 (Version 1)
Quarter: 2014Q1

REPORT INFORMATION
  Report Type: Report from Study
  Country: US (occurrence: US)
  Receive Date: 20140116
  Receipt Date: 20140116
  Transmission Date: 20141002
  Serious: Yes (Other)
  Sender: FDA-Public Use
  Company Number: US-BAXTER-2014BAX001094

PATIENT
  Sex: 0

DRUGS (18)
  1. KIOVIG 1G/10ML [Suspect]
     Indication: TRANSPLANT REJECTION
     Dosage: 19 TO 20 MONTHS AFTER TRANSPLANT
     Route: 042
  2. KIOVIG 1G/10ML [Suspect]
     Indication: OFF LABEL USE
  3. TACROLIMUS [Concomitant]
     Indication: IMMUNOSUPPRESSION
     Dosage: TROUGH LEVEL 9-12 IN THE FIRST 3 MONTHS
  4. TACROLIMUS [Concomitant]
     Dosage: TROUGH LEVEL 8-10 FROM 3-6 MONTHS
  5. TACROLIMUS [Concomitant]
     Dosage: TROUGH LEVEL 7-9 FROM 6-12 MONTHS
  6. TACROLIMUS [Concomitant]
     Dosage: TROUGH LEVEL 5-7 MORE THAN 12 MONTHS
  7. THYMOGLOBULIN [Concomitant]
     Indication: IMMUNOSUPPRESSION
     Dosage: 4.5-5 MG/KG IN 3-4 DOSES
  8. MYFORTIC [Concomitant]
     Indication: IMMUNOSUPPRESSION
  9. PREDNISONE [Concomitant]
     Indication: IMMUNOSUPPRESSION
     Dosage: D4
  10. PREDNISONE [Concomitant]
     Dosage: D5
  11. PREDNISONE [Concomitant]
     Dosage: D6
  12. PREDNISONE [Concomitant]
     Dosage: D7
  13. PREDNISONE [Concomitant]
     Dosage: D3-6
  14. PREDNISONE [Concomitant]
     Dosage: D7
  15. PREDNISONE [Concomitant]
     Dosage: BY 3 WEEKS
  16. SOLUMEDROL [Concomitant]
     Indication: IMMUNOSUPPRESSION
     Dosage: D1
  17. SOLUMEDROL [Concomitant]
     Dosage: D2
  18. SOLUMEDROL [Concomitant]
     Dosage: D3

REACTIONS (1)
  - Drug effect decreased [Unknown]
